FAERS Safety Report 4798075-3 (Version None)
Quarter: 2005Q4

REPORT INFORMATION
  Report Type: 
  Country: None (occurrence: None)
  Receive Date: 20051011
  Receipt Date: 20051011
  Transmission Date: 20060501
  Serious: Yes (Other)
  Sender: FDA-Public Use
  Company Number: None

PATIENT
  Age: 67 Year
  Sex: Female
  Weight: 111 kg

DRUGS (1)
  1. TAXOL [Suspect]

REACTIONS (2)
  - DEVICE FAILURE [None]
  - PROCEDURAL COMPLICATION [None]
